FAERS Safety Report 11700983 (Version 2)
Quarter: 2015Q4

REPORT INFORMATION
  Report Type: Report from Study
  Country: JP (occurrence: JP)
  Receive Date: 20151105
  Receipt Date: 20151119
  Transmission Date: 20160304
  Serious: Yes (Death, Hospitalization)
  Sender: FDA-Public Use
  Company Number: JP-JNJFOC-20151101536

PATIENT
  Age: 71 Year
  Sex: Male
  Weight: 52 kg

DRUGS (9)
  1. XEPLION [Suspect]
     Active Substance: PALIPERIDONE PALMITATE
     Indication: SCHIZOPHRENIA
     Route: 030
     Dates: start: 20150317, end: 20150317
  2. XEPLION [Suspect]
     Active Substance: PALIPERIDONE PALMITATE
     Indication: SCHIZOPHRENIA
     Route: 030
     Dates: start: 20150324, end: 20150324
  3. SILECE [Concomitant]
     Active Substance: FLUNITRAZEPAM
     Indication: SCHIZOPHRENIA
     Route: 048
     Dates: end: 20151007
  4. XEPLION [Suspect]
     Active Substance: PALIPERIDONE PALMITATE
     Indication: SCHIZOPHRENIA
     Route: 030
     Dates: start: 20150421, end: 20150421
  5. BIPERIDEN HYDROCHLORIDE [Suspect]
     Active Substance: BIPERIDEN HYDROCHLORIDE
     Indication: SCHIZOPHRENIA
     Route: 048
  6. XEPLION [Suspect]
     Active Substance: PALIPERIDONE PALMITATE
     Indication: SCHIZOPHRENIA
     Route: 030
     Dates: start: 20150910
  7. XEPLION [Suspect]
     Active Substance: PALIPERIDONE PALMITATE
     Indication: SCHIZOPHRENIA
     Route: 030
     Dates: start: 20150519, end: 20150519
  8. SOLANAX [Concomitant]
     Active Substance: ALPRAZOLAM
     Indication: SCHIZOPHRENIA
     Route: 048
     Dates: end: 20151007
  9. BIPERIDEN HYDROCHLORIDE [Suspect]
     Active Substance: BIPERIDEN HYDROCHLORIDE
     Indication: PARKINSONISM
     Route: 048

REACTIONS (5)
  - Hallucination, auditory [Unknown]
  - Incorrect dose administered [Unknown]
  - Off label use [Unknown]
  - Myocardial ischaemia [Fatal]
  - Hypokinesia [Unknown]

NARRATIVE: CASE EVENT DATE: 2015
